FAERS Safety Report 6384123-6 (Version None)
Quarter: 2009Q4

REPORT INFORMATION
  Report Type: 
  Country: None (occurrence: None)
  Receive Date: 20091001
  Receipt Date: 20090924
  Transmission Date: 20100525
  Serious: Yes (Other)
  Sender: FDA-Public Use
  Company Number: US-ROCHE-500208

PATIENT
  Age: 59 Year
  Sex: Female

DRUGS (10)
  1. BONIVA [Suspect]
     Indication: OSTEOPOROSIS
     Route: 048
     Dates: start: 20070527
  2. SIMVASTATIN [Concomitant]
     Dates: start: 20070520
  3. PROZAC [Concomitant]
  4. KLONOPIN [Concomitant]
  5. SYNTHROID [Concomitant]
  6. PRILOSEC [Concomitant]
  7. CALCIUM [Concomitant]
  8. VIT D [Concomitant]
     Dosage: DRUG: VITAMIN D
  9. METAMUCIL [Concomitant]
  10. FISH OIL [Concomitant]

REACTIONS (3)
  - BARRETT'S OESOPHAGUS [None]
  - NASOPHARYNGITIS [None]
  - OSTEOPOROSIS [None]
